FAERS Safety Report 4353780-8 (Version None)
Quarter: 2004Q2

REPORT INFORMATION
  Report Type: 
  Country: None (occurrence: None)
  Receive Date: 20040430
  Receipt Date: 20040205
  Transmission Date: 20050107
  Serious: Yes (Hospitalization)
  Sender: FDA-Public Use
  Company Number: KDL065909

PATIENT
  Age: 69 Year
  Sex: Female

DRUGS (6)
  1. EPOGEN [Suspect]
     Indication: ANAEMIA OF MALIGNANT DISEASE
     Dosage: 2 IN 1 WEEKS, SC
     Route: 058
     Dates: start: 20030101
  2. ANTIHYPERTENSIVE [Concomitant]
  3. SERTRALINE HYDROCHLORIDE [Concomitant]
  4. ALPRAZOLAM [Concomitant]
  5. ANALGESIC LIQ [Concomitant]
  6. MAGNESIUM OXIDE [Concomitant]

REACTIONS (2)
  - MALIGNANT NEOPLASM PROGRESSION [None]
  - MULTIPLE MYELOMA [None]
